FAERS Safety Report 11158846 (Version 2)
Quarter: 2015Q3

REPORT INFORMATION
  Report Type: Spontaneous
  Country: US (occurrence: US)
  Receive Date: 20150603
  Receipt Date: 20150820
  Transmission Date: 20151125
  Serious: No
  Sender: FDA-Public Use
  Company Number: US-ELI_LILLY_AND_COMPANY-US201505004663

PATIENT
  Sex: Male
  Weight: 70.75 kg

DRUGS (2)
  1. HUMATROPE [Suspect]
     Active Substance: SOMATROPIN
     Indication: GROWTH HORMONE DEFICIENCY
     Dosage: 0.3 MG, QD
     Route: 058
  2. CIALIS [Concomitant]
     Active Substance: TADALAFIL
     Dosage: UNK, PRN
     Route: 065

REACTIONS (1)
  - Constipation [Unknown]
